FAERS Safety Report 11868715 (Version 1)
Quarter: 2015Q4

REPORT INFORMATION
  Report Type: Report from Study
  Country: DE (occurrence: DE)
  Receive Date: 20151225
  Receipt Date: 20151225
  Transmission Date: 20160305
  Serious: Yes (Other)
  Sender: FDA-Public Use
  Company Number: DE-ROCHE-1639978

PATIENT
  Age: 51 Year
  Sex: Male
  Weight: 100 kg

DRUGS (7)
  1. QUETIAPINE FUMARATE. [Concomitant]
     Active Substance: QUETIAPINE FUMARATE
     Route: 065
  2. ASPIRIN. [Concomitant]
     Active Substance: ASPIRIN
     Route: 065
  3. SOVALDI [Suspect]
     Active Substance: SOFOSBUVIR
     Indication: CHRONIC HEPATITIS C
     Route: 048
     Dates: start: 20150707
  4. NOVALGIN [Concomitant]
     Active Substance: METAMIZOLE SODIUM
  5. PANTOPRAZOL [Concomitant]
     Active Substance: PANTOPRAZOLE SODIUM
     Route: 065
  6. RIBAVIRIN. [Suspect]
     Active Substance: RIBAVIRIN
     Indication: CHRONIC HEPATITIS C
     Route: 048
     Dates: start: 20150707
  7. CARBAMAZEPIN [Concomitant]
     Active Substance: CARBAMAZEPINE
     Route: 065

REACTIONS (13)
  - Abdominal pain [Unknown]
  - Emphysema [Unknown]
  - Myalgia [Unknown]
  - Irritability [Unknown]
  - Restlessness [Unknown]
  - Depressed mood [Unknown]
  - Fatigue [Unknown]
  - Headache [Unknown]
  - Haematochezia [Unknown]
  - Depression [Unknown]
  - Musculoskeletal chest pain [Unknown]
  - Arthralgia [Unknown]
  - Flatulence [Unknown]

NARRATIVE: CASE EVENT DATE: 20151117
